FAERS Safety Report 8557843-2 (Version None)
Quarter: 2012Q3

REPORT INFORMATION
  Report Type: 
  Country: None (occurrence: None)
  Receive Date: 20120801
  Receipt Date: 20120726
  Transmission Date: 20120928
  Serious: Yes (Disabling)
  Sender: FDA-Public Use
  Company Number: US-GLAXOSMITHKLINE-A0987201A

PATIENT
  Age: 93 Year
  Sex: Female

DRUGS (1)
  1. VOTRIENT [Suspect]
     Indication: RENAL CELL CARCINOMA
     Route: 048

REACTIONS (4)
  - NEUROLOGICAL SYMPTOM [None]
  - EMBOLIC STROKE [None]
  - CEREBROVASCULAR ACCIDENT [None]
  - THYROID DISORDER [None]
